FAERS Safety Report 19769715 (Version 8)
Quarter: 2024Q3

REPORT INFORMATION
  Report Type: Spontaneous
  Country: US (occurrence: US)
  Receive Date: 20210831
  Receipt Date: 20240813
  Transmission Date: 20241016
  Serious: Yes (Hospitalization, Other)
  Sender: PFIZER
  Company Number: US-PFIZER INC-202101059094

PATIENT
  Age: 68 Year
  Sex: Female
  Weight: 108.86 kg

DRUGS (3)
  1. BOSULIF [Suspect]
     Active Substance: BOSUTINIB MONOHYDRATE
     Indication: Chronic myeloid leukaemia
     Dosage: 100 MG
  2. BOSULIF [Suspect]
     Active Substance: BOSUTINIB MONOHYDRATE
     Dosage: 300 MG, 1X/DAY (TAKE 3 BY MOUTH ONCE DAILY. SHOULD BE TAKEN WITH FOOD)
     Route: 048
  3. BOSULIF [Suspect]
     Active Substance: BOSUTINIB MONOHYDRATE
     Dosage: 400 MG, ONCE DAILY (SHOULD BE TAKEN WITH FOOD)
     Route: 048

REACTIONS (4)
  - Cellulitis [Unknown]
  - Herpes zoster [Unknown]
  - Dyspnoea [Unknown]
  - Urticaria [Unknown]
